FAERS Safety Report 5366160-3 (Version None)
Quarter: 2007Q2

REPORT INFORMATION
  Report Type: 
  Country: None (occurrence: None)
  Receive Date: 20070611
  Receipt Date: 20060831
  Transmission Date: 20071010
  Serious: Yes (Death, Other)
  Sender: FDA-Public Use
  Company Number: USA-2006-0026825

PATIENT
  Age: 22 Year
  Sex: Male

DRUGS (2)
  1. OXYCONTIN [Suspect]
     Indication: DRUG ABUSER
     Dosage: INT
  2. CANNABIS (CANNABIS) [Suspect]
     Indication: DRUG ABUSER
     Dosage: INHALATION
     Route: 055

REACTIONS (2)
  - OVERDOSE [None]
  - SUBSTANCE ABUSE [None]
